FAERS Safety Report 19224034 (Version 10)
Quarter: 2022Q2

REPORT INFORMATION
  Report Type: Spontaneous
  Country: US (occurrence: None)
  Receive Date: 20210505
  Receipt Date: 20220611
  Transmission Date: 20220721
  Serious: Yes (Hospitalization)
  Sender: FDA-Public Use
  Company Number: US-ROCHE-2570938

PATIENT
  Sex: Male

DRUGS (13)
  1. ESBRIET [Suspect]
     Active Substance: PIRFENIDONE
     Indication: Idiopathic pulmonary fibrosis
     Route: 048
     Dates: start: 201911
  2. ESBRIET [Suspect]
     Active Substance: PIRFENIDONE
     Indication: Idiopathic pulmonary fibrosis
     Dosage: TAKE TWO CAPSULES BY MOUTH TWICE A DAY
     Route: 048
     Dates: start: 20200226
  3. ESBRIET [Suspect]
     Active Substance: PIRFENIDONE
     Dosage: TWICE DAILY
     Route: 048
     Dates: start: 202202
  4. ESBRIET [Suspect]
     Active Substance: PIRFENIDONE
     Dosage: 2 CAPSULES TWICE DAILY
     Route: 048
  5. AMLODIPINE [Concomitant]
     Active Substance: AMLODIPINE BESYLATE
  6. ASPIRIN [Concomitant]
     Active Substance: ASPIRIN
  7. ATORVASTATIN [Concomitant]
     Active Substance: ATORVASTATIN
  8. GABAPENTIN [Concomitant]
     Active Substance: GABAPENTIN
  9. HYDRALAZINE [Concomitant]
     Active Substance: HYDRALAZINE HYDROCHLORIDE
  10. LEVETIRACETAM [Concomitant]
     Active Substance: LEVETIRACETAM
  11. METOPROLOL [Concomitant]
     Active Substance: METOPROLOL
  12. TAMSULOSIN [Concomitant]
     Active Substance: TAMSULOSIN
  13. TRELEGY ELLIPTA [Concomitant]
     Active Substance: FLUTICASONE FUROATE\UMECLIDINIUM BROMIDE\VILANTEROL TRIFENATATE

REACTIONS (24)
  - Pneumonia [Unknown]
  - Bronchitis [Unknown]
  - Decreased appetite [Not Recovered/Not Resolved]
  - Weight decreased [Not Recovered/Not Resolved]
  - Pollakiuria [Not Recovered/Not Resolved]
  - Rash [Unknown]
  - Dyspnoea [Unknown]
  - Skin discolouration [Unknown]
  - Cough [Unknown]
  - Skin discolouration [Not Recovered/Not Resolved]
  - Eye disorder [Not Recovered/Not Resolved]
  - Rash [Not Recovered/Not Resolved]
  - Dysuria [Unknown]
  - Photosensitivity reaction [Unknown]
  - Off label use [Unknown]
  - Photosensitivity reaction [Not Recovered/Not Resolved]
  - Skin discolouration [Not Recovered/Not Resolved]
  - Balance disorder [Unknown]
  - Dizziness [Unknown]
  - Fall [Unknown]
  - Back disorder [Unknown]
  - Choking [Unknown]
  - Wheezing [Unknown]
  - Productive cough [Unknown]
